FAERS Safety Report 9983592 (Version 1)
Quarter: 2014Q1

REPORT INFORMATION
  Report Type: Spontaneous
  Country: US (occurrence: US)
  Receive Date: 20140307
  Receipt Date: 20140307
  Transmission Date: 20141002
  Serious: Yes (Other)
  Sender: FDA-Public Use
  Company Number: US-JNJFOC-20140300229

PATIENT
  Age: 33 Year
  Sex: Male
  Weight: 70.31 kg

DRUGS (1)
  1. NUCYNTA IR [Suspect]
     Indication: BACK INJURY
     Route: 048
     Dates: start: 2010

REACTIONS (6)
  - Joint arthroplasty [Unknown]
  - Immobile [Not Recovered/Not Resolved]
  - Drug dose omission [Not Recovered/Not Resolved]
  - Muscle spasticity [Not Recovered/Not Resolved]
  - Muscular weakness [Not Recovered/Not Resolved]
  - Feeling abnormal [Not Recovered/Not Resolved]
